FAERS Safety Report 17315842 (Version 4)
Quarter: 2020Q1

REPORT INFORMATION
  Report Type: Spontaneous
  Country: US (occurrence: US)
  Receive Date: 20200124
  Receipt Date: 20200317
  Transmission Date: 20200409
  Serious: No
  Sender: FDA-Public Use
  Company Number: US-PFIZER INC-2019156175

PATIENT
  Age: 73 Year
  Sex: Female
  Weight: 52.61 kg

DRUGS (1)
  1. PREMARIN [Suspect]
     Active Substance: ESTROGENS, CONJUGATED
     Indication: HOT FLUSH
     Dosage: UNK
     Dates: start: 1985

REACTIONS (3)
  - Influenza [Unknown]
  - Malaise [Not Recovered/Not Resolved]
  - Feeling of body temperature change [Unknown]
